FAERS Safety Report 4272907-X (Version None)
Quarter: 2004Q1

REPORT INFORMATION
  Report Type: 
  Country: None (occurrence: None)
  Receive Date: 20040114
  Receipt Date: 20040112
  Transmission Date: 20041129
  Serious: Yes (Hospitalization)
  Sender: FDA-Public Use
  Company Number: DE-JNJFOC-20031200567

PATIENT
  Age: 40 Year
  Sex: Female
  Weight: 66 kg

DRUGS (2)
  1. ITRACONAZOLE [Suspect]
     Indication: VAGINAL MYCOSIS
     Dosage: 2 DOSE (S), ORAL
     Route: 048
     Dates: start: 20031127
  2. L-THYROXIN (TABLETS) LEVOTHYROXINE SODIUM [Concomitant]

REACTIONS (6)
  - CARDIOVASCULAR DISORDER [None]
  - FEELING ABNORMAL [None]
  - JOINT EFFUSION [None]
  - OEDEMA PERIPHERAL [None]
  - OLIGOMENORRHOEA [None]
  - VERTIGO [None]
